FAERS Safety Report 4412327-8 (Version None)
Quarter: 2004Q3

REPORT INFORMATION
  Report Type: 
  Country: None (occurrence: None)
  Receive Date: 20040730
  Receipt Date: 20040713
  Transmission Date: 20050211
  Serious: Yes (Hospitalization)
  Sender: FDA-Public Use
  Company Number: US-MERCK-0407USA01184

PATIENT
  Age: 80 Year
  Sex: Female

DRUGS (5)
  1. LEXAPRO [Concomitant]
     Route: 065
  2. PREMARIN [Concomitant]
     Route: 065
  3. ZETIA [Suspect]
     Indication: HYPERCHOLESTEROLAEMIA
     Route: 048
  4. PROTONIX [Concomitant]
     Route: 065
  5. TICLID [Concomitant]
     Route: 065

REACTIONS (1)
  - PANCREATITIS [None]
